FAERS Safety Report 7952485-1 (Version None)
Quarter: 2011Q4

REPORT INFORMATION
  Report Type: 
  Country: None (occurrence: None)
  Receive Date: 20111201
  Receipt Date: 20111125
  Transmission Date: 20120403
  Serious: Yes (Death, Other)
  Sender: FDA-Public Use
  Company Number: US-CELGENEUS-163-21880-11092592

PATIENT
  Sex: Female

DRUGS (1)
  1. REVLIMID [Suspect]
     Dosage: 25 MILLIGRAM
     Route: 048
     Dates: start: 20110512, end: 20110901

REACTIONS (3)
  - SEPTIC SHOCK [None]
  - PNEUMONIA PNEUMOCOCCAL [None]
  - PANCYTOPENIA [None]
